FAERS Safety Report 15703019 (Version 1)
Quarter: 2018Q4

REPORT INFORMATION
  Report Type: Report from Study
  Country: GB (occurrence: GB)
  Receive Date: 20181210
  Receipt Date: 20181210
  Transmission Date: 20190205
  Serious: Yes (Other)
  Sender: FDA-Public Use
  Company Number: GB-TEVA-2018-GB-985809

PATIENT
  Sex: Male

DRUGS (4)
  1. CARBOPLATIN. [Suspect]
     Active Substance: CARBOPLATIN
     Indication: PANCREATIC NEUROENDOCRINE TUMOUR
     Dosage: 6 CYCLES
     Route: 065
  2. STREPTOZOCIN [Suspect]
     Active Substance: STREPTOZOCIN
     Indication: PANCREATIC NEUROENDOCRINE TUMOUR
     Dosage: 6 CYCLES
     Route: 065
  3. 5-FLUOROURACIL [Suspect]
     Active Substance: FLUOROURACIL
     Indication: PANCREATIC NEUROENDOCRINE TUMOUR
     Dosage: 6 CYCLES
     Route: 065
  4. 90Y-DOTATATE [Suspect]
     Active Substance: YTTRIUM OXODOTREOTIDE Y-90
     Indication: PANCREATIC NEUROENDOCRINE TUMOUR
     Dosage: 3 CYCLES WITH A CUMULATIVE ACTIVITY 3.3 GBQ
     Route: 065

REACTIONS (2)
  - Renal impairment [Unknown]
  - Renal failure [Unknown]
